FAERS Safety Report 8443585-0 (Version None)
Quarter: 2012Q2

REPORT INFORMATION
  Report Type: 
  Country: None (occurrence: None)
  Receive Date: 20120618
  Receipt Date: 20120607
  Transmission Date: 20120825
  Serious: Yes (Life-Threatening)
  Sender: FDA-Public Use
  Company Number: US-BAYER-2012-058048

PATIENT
  Sex: Female

DRUGS (1)
  1. MIRENA [Suspect]
     Dosage: 20 MCG/24HR, CONT
     Route: 015
     Dates: start: 20030922

REACTIONS (9)
  - PREGNANCY WITH CONTRACEPTIVE DEVICE [None]
  - ABORTION SPONTANEOUS [None]
  - PAIN [None]
  - ANXIETY [None]
  - FEAR OF DISEASE [None]
  - DEFORMITY [None]
  - EMOTIONAL DISTRESS [None]
  - INJURY [None]
  - ANHEDONIA [None]
